FAERS Safety Report 23957160 (Version 5)
Quarter: 2024Q4

REPORT INFORMATION
  Report Type: Spontaneous
  Country: US (occurrence: US)
  Receive Date: 20240610
  Receipt Date: 20241018
  Transmission Date: 20250114
  Serious: No
  Sender: PHARMING GROUP
  Company Number: US-PHARMING-PHAUS2024000442

PATIENT

DRUGS (7)
  1. RUCONEST [Suspect]
     Active Substance: CONESTAT ALFA
     Indication: Hereditary angioedema
     Dosage: 2100 IU TO 4200 IU OVER 5 MINUTES TWICE A WEEK AND AS NEEDED
     Route: 058
     Dates: start: 201803
  2. RUCONEST [Suspect]
     Active Substance: CONESTAT ALFA
     Dosage: 2100 IU TO 4200 IU OVER 5 MINUTES TWICE A WEEK AND AS NEEDED
     Route: 058
     Dates: start: 201803
  3. RUCONEST [Suspect]
     Active Substance: CONESTAT ALFA
     Dosage: 2100 IU TO 4200 IU OVER 5 MINUTES TWICE A WEEK AND AS NEEDED
     Route: 058
     Dates: start: 201803
  4. RUCONEST [Suspect]
     Active Substance: CONESTAT ALFA
     Dosage: 2100 IU TO 4200 IU OVER 5 MINUTES TWICE A WEEK AND AS NEEDED
     Route: 058
     Dates: start: 201803
  5. RUCONEST [Suspect]
     Active Substance: CONESTAT ALFA
     Dosage: 2100 IU, TWICE A WEEK AND AS NEEDED
     Route: 058
     Dates: start: 201803
  6. BENADRYL [Concomitant]
     Active Substance: DIPHENHYDRAMINE HYDROCHLORIDE
     Indication: Arthropod bite
  7. LIDOCAINE AND PRILOCAINE [Concomitant]
     Active Substance: LIDOCAINE\PRILOCAINE
     Indication: Product used for unknown indication

REACTIONS (9)
  - Tooth fracture [Unknown]
  - Trismus [Unknown]
  - Pain in jaw [Unknown]
  - Oral pain [Unknown]
  - Gingival pain [Unknown]
  - Incorrect route of product administration [Unknown]
  - Product use in unapproved indication [Unknown]
  - Intentional product use issue [Unknown]
  - Underdose [Unknown]
